FAERS Safety Report 24639106 (Version 3)
Quarter: 2025Q2

REPORT INFORMATION
  Report Type: Spontaneous
  Country: US (occurrence: US)
  Receive Date: 20241119
  Receipt Date: 20250510
  Transmission Date: 20250717
  Serious: No
  Sender: SANOFI AVENTIS
  Company Number: US-SA-2024SA326525

PATIENT
  Age: 16 Year
  Sex: Female

DRUGS (3)
  1. DUPIXENT [Suspect]
     Active Substance: DUPILUMAB
     Indication: Dermatitis atopic
     Dosage: 300 MG, QOW
     Route: 058
     Dates: start: 202402
  2. DUPIXENT [Suspect]
     Active Substance: DUPILUMAB
     Indication: Eczema
  3. DUPIXENT [Suspect]
     Active Substance: DUPILUMAB
     Indication: Impetigo

REACTIONS (9)
  - Impetigo [Unknown]
  - Condition aggravated [Unknown]
  - Dermatitis atopic [Unknown]
  - Erythema [Unknown]
  - Skin fissures [Unknown]
  - Dry skin [Unknown]
  - Accidental exposure to product [Unknown]
  - Exposure via skin contact [Unknown]
  - Product use in unapproved indication [Unknown]

NARRATIVE: CASE EVENT DATE: 20241106
